FAERS Safety Report 12950361 (Version 2)
Quarter: 2017Q1

REPORT INFORMATION
  Report Type: Report from Study
  Country: US (occurrence: US)
  Receive Date: 20161117
  Receipt Date: 20170127
  Transmission Date: 20170428
  Serious: No
  Sender: FDA-Public Use
  Company Number: US-AMGEN-USASL2016158419

PATIENT
  Age: 57 Year
  Sex: Female

DRUGS (1)
  1. ENBREL [Suspect]
     Active Substance: ETANERCEPT
     Indication: PSORIATIC ARTHROPATHY
     Dosage: 50 MG, UNK
     Route: 065

REACTIONS (6)
  - Hypertension [Not Recovered/Not Resolved]
  - Myalgia [Unknown]
  - Sciatica [Unknown]
  - Pyrexia [Unknown]
  - Hypersensitivity [Unknown]
  - Sinus congestion [Unknown]
